FAERS Safety Report 16806351 (Version 1)
Quarter: 2019Q3

REPORT INFORMATION
  Report Type: Spontaneous
  Country: US (occurrence: US)
  Receive Date: 20190913
  Receipt Date: 20190913
  Transmission Date: 20191005
  Serious: No
  Sender: FDA-Public Use
  Company Number: US-PERRIGO-19US003150

PATIENT
  Age: 72 Year
  Sex: Female
  Weight: 40.36 kg

DRUGS (8)
  1. LIOTHYRONINE [Concomitant]
     Active Substance: LIOTHYRONINE
     Indication: HYPOTHYROIDISM
     Dosage: 20 MCG
     Route: 065
     Dates: start: 201812
  2. ESTROGEN [Concomitant]
     Active Substance: ESTROGENS
     Indication: VULVOVAGINAL DRYNESS
     Dosage: UNK
     Route: 067
     Dates: start: 2010
  3. MINERAL SUPPLEMENTS [Concomitant]
     Active Substance: MINERALS
     Indication: GASTROINTESTINAL BACTERIAL OVERGROWTH
     Dosage: UNK
     Route: 065
     Dates: start: 201902
  4. BIOTIN [Concomitant]
     Active Substance: BIOTIN
     Indication: ALOPECIA
     Dosage: 3000 MG
     Route: 048
     Dates: start: 201901
  5. MINOXIDIL. [Suspect]
     Active Substance: MINOXIDIL
     Indication: ALOPECIA
     Dosage: SLIGHTLY MORE THAN 1ML, BID
     Route: 061
     Dates: start: 201902, end: 20190306
  6. LEVOTHYROXINE. [Concomitant]
     Active Substance: LEVOTHYROXINE
     Indication: HYPOTHYROIDISM
     Dosage: 10 MCG
     Route: 065
     Dates: start: 2017
  7. BERBERINE HYDROCHLORIDE [Concomitant]
     Active Substance: BERBERINE
     Indication: GASTROINTESTINAL BACTERIAL OVERGROWTH
     Dosage: UNK
     Route: 065
     Dates: start: 201902
  8. DHEA [Concomitant]
     Active Substance: PRASTERONE
     Indication: HYPOTHYROIDISM
     Dosage: UNK
     Route: 065
     Dates: start: 201810

REACTIONS (3)
  - Product administered at inappropriate site [Recovered/Resolved]
  - Condition aggravated [Unknown]
  - Incorrect dose administered [Recovered/Resolved]

NARRATIVE: CASE EVENT DATE: 201902
